FAERS Safety Report 13880879 (Version 2)
Quarter: 2017Q4

REPORT INFORMATION
  Report Type: Spontaneous
  Country: US (occurrence: US)
  Receive Date: 20170818
  Receipt Date: 20171024
  Transmission Date: 20180320
  Serious: Yes (Other)
  Sender: FDA-Public Use
  Company Number: US-BAYER-2017-153500

PATIENT
  Sex: Female
  Weight: 50 kg

DRUGS (2)
  1. COPPERTONE SPORT SPF 50 [Suspect]
     Active Substance: AVOBENZONE\HOMOSALATE\OCTISALATE\OCTOCRYLENE\OXYBENZONE
     Indication: THERAPEUTIC SKIN CARE TOPICAL
     Dosage: PRN
     Route: 061
     Dates: start: 20170806, end: 20170806
  2. COPPERTONE SPORT SUNSCREEN SPF 50 [Suspect]
     Active Substance: AVOBENZONE\HOMOSALATE\OCTISALATE\OCTOCRYLENE\OXYBENZONE
     Dosage: UNK
     Route: 065

REACTIONS (6)
  - Poor quality drug administered [Unknown]
  - Wound haemorrhage [Recovered/Resolved]
  - Product package associated injury [Recovered/Resolved]
  - Product odour abnormal [Unknown]
  - Asphyxia [Unknown]
  - Accidental exposure to product [Unknown]

NARRATIVE: CASE EVENT DATE: 20170806
